FAERS Safety Report 7324472-8 (Version None)
Quarter: 2011Q1

REPORT INFORMATION
  Report Type: 
  Country: None (occurrence: None)
  Receive Date: 20110203
  Receipt Date: 20101006
  Transmission Date: 20110831
  Serious: Yes (Other)
  Sender: FDA-Public Use
  Company Number: 019965

PATIENT
  Sex: Female

DRUGS (2)
  1. CETIRIZINE HCL [Suspect]
  2. KEPPRA [Suspect]

REACTIONS (1)
  - CONVULSION [None]
